FAERS Safety Report 13609532 (Version 1)
Quarter: 2017Q2

REPORT INFORMATION
  Report Type: Spontaneous
  Country: US (occurrence: US)
  Receive Date: 20170602
  Receipt Date: 20170602
  Transmission Date: 20170830
  Serious: Yes (Other)
  Sender: FDA-Public Use
  Company Number: US-PFIZER INC-2017234945

PATIENT
  Age: 51 Year
  Sex: Female
  Weight: 65.76 kg

DRUGS (8)
  1. LEXAPRO [Concomitant]
     Active Substance: ESCITALOPRAM OXALATE
     Indication: BRACHIAL PLEXUS INJURY
  2. LINZESS [Concomitant]
     Active Substance: LINACLOTIDE
     Indication: IRRITABLE BOWEL SYNDROME
     Dosage: 145 UG, 1X/DAY
  3. CHANTIX [Suspect]
     Active Substance: VARENICLINE TARTRATE
     Indication: SMOKING CESSATION THERAPY
     Dosage: UNK, 2X/DAY; [DAY AND EVENING DOSES]
     Route: 048
     Dates: start: 201705, end: 201705
  4. LEXAPRO [Concomitant]
     Active Substance: ESCITALOPRAM OXALATE
     Indication: NERVE INJURY
     Dosage: 0.5 MG, 1X/DAY
     Dates: start: 2016
  5. AMBIEN [Concomitant]
     Active Substance: ZOLPIDEM TARTRATE
     Indication: NIGHTMARE
  6. AMBIEN [Concomitant]
     Active Substance: ZOLPIDEM TARTRATE
     Indication: SLEEP DISORDER
     Dosage: UNK, 1X/DAY; (AT NIGHT/ MAYBE 5MG OR 10MG)
  7. PERCOCET [Concomitant]
     Active Substance: ACETAMINOPHEN\OXYCODONE HYDROCHLORIDE
     Indication: PAIN
     Dosage: 10 MG, UNK[TWO TO FOUR TIMES A DAY]
     Dates: start: 2016
  8. NEXIUM [Concomitant]
     Active Substance: ESOMEPRAZOLE MAGNESIUM
     Indication: IRRITABLE BOWEL SYNDROME
     Dosage: 20 MG, AS NEEDED

REACTIONS (19)
  - Stevens-Johnson syndrome [Not Recovered/Not Resolved]
  - Head injury [Unknown]
  - Erythema [Not Recovered/Not Resolved]
  - Nightmare [Recovering/Resolving]
  - Vomiting [Unknown]
  - Headache [Unknown]
  - Pruritus [Not Recovered/Not Resolved]
  - Suicidal ideation [Recovered/Resolved]
  - Mood altered [Recovering/Resolving]
  - Rash [Not Recovered/Not Resolved]
  - Paranoia [Unknown]
  - Agitation [Recovering/Resolving]
  - Dyspnoea [Not Recovered/Not Resolved]
  - Peripheral swelling [Recovering/Resolving]
  - Angioedema [Not Recovered/Not Resolved]
  - Muscle spasms [Unknown]
  - Pain in extremity [Recovering/Resolving]
  - Arthralgia [Recovering/Resolving]
  - Syncope [Unknown]

NARRATIVE: CASE EVENT DATE: 201705
